FAERS Safety Report 12852980 (Version 2)
Quarter: 2016Q4

REPORT INFORMATION
  Report Type: Spontaneous
  Country: BR (occurrence: BR)
  Receive Date: 20161017
  Receipt Date: 20161019
  Transmission Date: 20170207
  Serious: Yes (Other)
  Sender: FDA-Public Use
  Company Number: BR-PFIZER INC-2016466570

PATIENT
  Sex: Female

DRUGS (1)
  1. DETRUSITOL [Suspect]
     Active Substance: TOLTERODINE TARTRATE
     Dosage: UNK
     Route: 048
     Dates: start: 20160802, end: 2016

REACTIONS (9)
  - Hypoaesthesia [Unknown]
  - Feeling abnormal [Unknown]
  - Gait disturbance [Unknown]
  - Abdominal pain upper [Unknown]
  - Nausea [Unknown]
  - Pain in extremity [Unknown]
  - Toothache [Unknown]
  - Panic attack [Unknown]
  - Paresis [Unknown]

NARRATIVE: CASE EVENT DATE: 2016
